FAERS Safety Report 4398633-4 (Version None)
Quarter: 2004Q2

REPORT INFORMATION
  Report Type: 
  Country: None (occurrence: None)
  Receive Date: 20040621
  Receipt Date: 20040115
  Transmission Date: 20050107
  Serious: Yes (Other)
  Sender: FDA-Public Use
  Company Number: 2014692

PATIENT
  Age: 49 Year
  Sex: Male
  Weight: 107 kg

DRUGS (21)
  1. OXYCONTIN [Suspect]
     Indication: PAIN
     Dosage: 20 MG, BID, ORAL
     Route: 048
     Dates: start: 20001005, end: 20001011
  2. OXYCONTIN [Suspect]
     Indication: PAIN
     Dosage: 40 MG, BID,ORAL
     Route: 048
     Dates: start: 20001011, end: 20010126
  3. OXYCONTIN [Suspect]
     Indication: PAIN
     Dosage: 80 MG, BID, ORAL
     Route: 048
     Dates: start: 20010126, end: 20010525
  4. LORTAB [Suspect]
     Indication: PAIN
     Dosage: 1 TABLET, SEE TEXT, ORAL
     Route: 048
     Dates: start: 20001005, end: 20001201
  5. PERCOCET [Suspect]
     Indication: PAIN
     Dosage: 1 TABLET, BID PRN, ORAL
     Route: 048
     Dates: start: 20001201, end: 20010126
  6. OXYCODONE HCL [Suspect]
     Indication: PAIN
     Dosage: 15 MG, BID PRN, ORAL
     Route: 048
     Dates: start: 20010126
  7. VIOXX [Concomitant]
  8. TOPROL-XL [Concomitant]
  9. ELAVIL [Concomitant]
  10. ZOCOR [Concomitant]
  11. NEURONTIN [Concomitant]
  12. HYDROCHLOROTHIAZIDE [Concomitant]
  13. CELEXA [Concomitant]
  14. MEDROL [Concomitant]
  15. SKELAXIN [Concomitant]
  16. BIAXIN [Concomitant]
  17. DURAGESIC [Concomitant]
  18. VIAGRA [Concomitant]
  19. WELLBUTRIN SR [Concomitant]
  20. DHEA [Concomitant]
  21. TESTOSTERONE [Concomitant]

REACTIONS (23)
  - ACCIDENT AT WORK [None]
  - ANXIETY [None]
  - ARTHRALGIA [None]
  - CHEST PAIN [None]
  - DEPRESSION [None]
  - DEPRESSION SUICIDAL [None]
  - DRUG DEPENDENCE [None]
  - DRUG INEFFECTIVE [None]
  - DYSPEPSIA [None]
  - DYSPNOEA [None]
  - EMOTIONAL DISORDER [None]
  - ERECTILE DYSFUNCTION [None]
  - HYPOAESTHESIA [None]
  - LOSS OF CONSCIOUSNESS [None]
  - NAUSEA [None]
  - PAIN IN EXTREMITY [None]
  - PARAESTHESIA [None]
  - POLLAKIURIA [None]
  - PRODUCTIVE COUGH [None]
  - SCROTAL PAIN [None]
  - TESTICULAR DISORDER [None]
  - URINARY HESITATION [None]
  - URINARY RETENTION [None]
